FAERS Safety Report 7032433-1 (Version None)
Quarter: 2010Q4

REPORT INFORMATION
  Report Type: 
  Country: None (occurrence: None)
  Receive Date: 20101001
  Receipt Date: 20100921
  Transmission Date: 20110411
  Serious: Yes (Disabling, Other)
  Sender: FDA-Public Use
  Company Number: APP201000765

PATIENT
  Sex: Male

DRUGS (4)
  1. VANCOMYCIN HYDROCHLORIDE [Suspect]
     Indication: STAPHYLOCOCCAL ABSCESS
     Dosage: INTRAVENOUS
     Route: 042
     Dates: start: 20100221, end: 20100221
  2. VANCOMYCIN HCL [Suspect]
     Indication: STAPHYLOCOCCAL ABSCESS
     Dosage: INTRAVENOUS
     Route: 042
  3. SODIUM CHLORIDE 0.9% [Concomitant]
  4. HEPARIN [Concomitant]

REACTIONS (5)
  - BALANCE DISORDER [None]
  - DEAFNESS UNILATERAL [None]
  - HEMIPLEGIA [None]
  - HYPOACUSIS [None]
  - VERTIGO [None]
